FAERS Safety Report 9076734 (Version 1)
Quarter: 2013Q1

REPORT INFORMATION
  Report Type: Report from Study
  Country: US (occurrence: US)
  Receive Date: 20130129
  Receipt Date: 20130129
  Transmission Date: 20140127
  Serious: No
  Sender: FDA-Public Use
  Company Number: US-ABBOTT-12P-163-0948820-00

PATIENT
  Age: 46 Year
  Sex: Female

DRUGS (12)
  1. HUMIRA 40 MG/0.8 ML PEN [Suspect]
     Indication: PSORIATIC ARTHROPATHY
     Dates: start: 201010
  2. NITROSTAT [Concomitant]
     Indication: CHEST PAIN
  3. CARVEDILOL [Concomitant]
     Indication: HYPERTENSION
  4. ISOSORBIDE MONONITRATE [Concomitant]
     Indication: CHEST PAIN
     Dosage: 30MG DAILY
  5. PLAVIX [Concomitant]
     Indication: ANTICOAGULANT THERAPY
     Dosage: 75MG DAILY
  6. LIPITOR [Concomitant]
     Indication: BLOOD CHOLESTEROL INCREASED
     Dosage: 20MG DAILY
  7. METFORMIN ER [Concomitant]
     Indication: TYPE 2 DIABETES MELLITUS
     Dosage: 500MG DAILY
  8. OXYCONTIN [Concomitant]
     Indication: PAIN
  9. OXYCODONE [Concomitant]
     Indication: PAIN
     Dosage: 10/325MG TWICE DAILY
  10. DIAZEPAM [Concomitant]
     Indication: ANEURYSM
  11. CYCLOBENZAPRINE [Concomitant]
     Indication: MUSCLE TIGHTNESS
     Dosage: 10MG DAILY
  12. CYCLOBENZAPRINE [Concomitant]
     Indication: MUSCLE TIGHTNESS

REACTIONS (7)
  - Pyrexia [Recovered/Resolved]
  - Respiratory tract congestion [Recovered/Resolved]
  - Condition aggravated [Recovered/Resolved]
  - Product quality issue [None]
  - Device malfunction [None]
  - Nasal congestion [Recovered/Resolved]
  - Bronchitis [Recovering/Resolving]
